FAERS Safety Report 24397211 (Version 1)
Quarter: 2024Q4

REPORT INFORMATION
  Report Type: Spontaneous
  Country: US (occurrence: US)
  Receive Date: 20241004
  Receipt Date: 20241004
  Transmission Date: 20250114
  Serious: No
  Sender: SANOFI AVENTIS
  Company Number: US-SA-2024SA284179

PATIENT
  Sex: Female

DRUGS (14)
  1. DUPIXENT [Suspect]
     Active Substance: DUPILUMAB
     Indication: Dermatitis atopic
     Dosage: LOADING DOSE, 1X
     Route: 058
  2. DUPIXENT [Suspect]
     Active Substance: DUPILUMAB
     Dosage: 600 MG, (TOOK 2 INJECTIONS FOR HER 2ND DOSE)
     Route: 058
  3. DUPIXENT [Suspect]
     Active Substance: DUPILUMAB
     Dosage: 300 MG, QOW
     Route: 058
  4. ALLEGRA ALLERGY [Concomitant]
     Active Substance: FEXOFENADINE HYDROCHLORIDE
  5. CLOBETASOL PROPIONATE [Concomitant]
     Active Substance: CLOBETASOL PROPIONATE
  6. LEVOTHYROXINE [Concomitant]
     Active Substance: LEVOTHYROXINE
  7. FLUTICASONE [Concomitant]
     Active Substance: FLUTICASONE
  8. PEPCID AC [Concomitant]
     Active Substance: FAMOTIDINE
  9. RIZATRIPTAN [Concomitant]
     Active Substance: RIZATRIPTAN
  10. TELMISARTAN [Concomitant]
     Active Substance: TELMISARTAN
  11. TRIAMCINOLONE [Concomitant]
     Active Substance: TRIAMCINOLONE
  12. TACROLIMUS [Concomitant]
     Active Substance: TACROLIMUS
  13. XOLAIR [Concomitant]
     Active Substance: OMALIZUMAB
  14. VALACYCLOVIR [Concomitant]
     Active Substance: VALACYCLOVIR HYDROCHLORIDE

REACTIONS (3)
  - Dizziness [Unknown]
  - Oral herpes [Unknown]
  - Extra dose administered [Unknown]
